FAERS Safety Report 8533042-5 (Version None)
Quarter: 2012Q3

REPORT INFORMATION
  Report Type: 
  Country: None (occurrence: None)
  Receive Date: 20120724
  Receipt Date: 20120717
  Transmission Date: 20120928
  Serious: Yes (Death)
  Sender: FDA-Public Use
  Company Number: DE-GENZYME-POMP-1002311

PATIENT
  Sex: Male
  Weight: 42 kg

DRUGS (1)
  1. MYOZYME [Suspect]
     Indication: GLYCOGEN STORAGE DISEASE TYPE II
     Dosage: UNK
     Route: 042
     Dates: start: 20061016, end: 20120130

REACTIONS (2)
  - MUSCULAR WEAKNESS [None]
  - PNEUMONIA [None]
